FAERS Safety Report 19180831 (Version 7)
Quarter: 2021Q3

REPORT INFORMATION
  Report Type: Spontaneous
  Country: CA (occurrence: CA)
  Receive Date: 20210426
  Receipt Date: 20210903
  Transmission Date: 20211014
  Serious: Yes (Other)
  Sender: FDA-Public Use
  Company Number: CA-PFIZER INC-2021349410

PATIENT
  Age: 56 Year
  Sex: Female

DRUGS (4)
  1. XELJANZ [Suspect]
     Active Substance: TOFACITINIB CITRATE
     Dosage: 5MG, 2X/DAY (2 TABLETS PER DAY) NOT STARTED YET
     Route: 048
  2. PREDNISONE. [Concomitant]
     Active Substance: PREDNISONE
     Dosage: UNK
  3. XELJANZ [Suspect]
     Active Substance: TOFACITINIB CITRATE
     Dosage: 10 MG, 2X/DAY (2 TABLETS PER DAY)
     Route: 048
     Dates: start: 20210606
  4. XELJANZ [Suspect]
     Active Substance: TOFACITINIB CITRATE
     Indication: COLITIS ULCERATIVE
     Dosage: 10 MG, 2X/DAY (INDUCTION DOSE FOR 8 WEEKS)
     Route: 048
     Dates: start: 202104

REACTIONS (13)
  - Cough [Unknown]
  - Off label use [Unknown]
  - Fatigue [Unknown]
  - Loss of personal independence in daily activities [Unknown]
  - Mental impairment [Unknown]
  - Oropharyngeal pain [Unknown]
  - Joint swelling [Unknown]
  - Dyspnoea exertional [Unknown]
  - Cognitive disorder [Unknown]
  - Skin discolouration [Unknown]
  - Rheumatoid arthritis [Unknown]
  - Retinal tear [Recovering/Resolving]
  - Pain in extremity [Unknown]

NARRATIVE: CASE EVENT DATE: 202104
